FAERS Safety Report 25097331 (Version 3)
Quarter: 2025Q2

REPORT INFORMATION
  Report Type: Report from Study
  Country: US (occurrence: US)
  Receive Date: 20250320
  Receipt Date: 20250516
  Transmission Date: 20250716
  Serious: Yes (Other)
  Sender: TAKEDA
  Company Number: US-TAKEDA-2024TUS123020

PATIENT
  Sex: Male

DRUGS (4)
  1. IXAZOMIB [Suspect]
     Active Substance: IXAZOMIB
     Indication: Plasma cell myeloma
  2. IXAZOMIB [Suspect]
     Active Substance: IXAZOMIB
  3. IXAZOMIB [Suspect]
     Active Substance: IXAZOMIB
  4. REVLIMID [Concomitant]
     Active Substance: LENALIDOMIDE

REACTIONS (14)
  - Plasma cell myeloma refractory [Unknown]
  - Joint swelling [Not Recovered/Not Resolved]
  - Neuropathy peripheral [Unknown]
  - Somnolence [Recovered/Resolved]
  - Weight increased [Not Recovered/Not Resolved]
  - Peripheral swelling [Not Recovered/Not Resolved]
  - Paraesthesia [Unknown]
  - Myalgia [Not Recovered/Not Resolved]
  - Fatigue [Not Recovered/Not Resolved]
  - Arthralgia [Not Recovered/Not Resolved]
  - Nasopharyngitis [Unknown]
  - Constipation [Unknown]
  - Diarrhoea [Unknown]
  - Rash [Not Recovered/Not Resolved]
